FAERS Safety Report 7761476-5 (Version None)
Quarter: 2011Q3

REPORT INFORMATION
  Report Type: 
  Country: None (occurrence: None)
  Receive Date: 20110920
  Receipt Date: 20110906
  Transmission Date: 20111222
  Serious: No
  Sender: FDA-Public Use
  Company Number: US-B.I. PHARMACEUTICALS,INC./RIDGEFIELD-2011-BP-02514BP

PATIENT
  Sex: Female

DRUGS (6)
  1. DIGOXIN [Concomitant]
     Indication: ATRIAL FIBRILLATION
     Route: 048
  2. ADVAIR DISKUS 100/50 [Suspect]
     Indication: CHRONIC OBSTRUCTIVE PULMONARY DISEASE
     Dates: start: 20101201
  3. CENTRUM [Concomitant]
     Indication: ROUTINE HEALTH MAINTENANCE
     Route: 048
  4. METOPROLOL TARTRATE [Concomitant]
     Indication: ATRIAL FIBRILLATION
     Route: 048
  5. VAGINAL PREMARIN CREAM [Concomitant]
     Indication: HORMONE REPLACEMENT THERAPY
     Route: 061
  6. PRADAXA [Suspect]
     Indication: ATRIAL FIBRILLATION
     Dosage: 300 MG
     Route: 048
     Dates: start: 20101201

REACTIONS (5)
  - DYSPHONIA [None]
  - ERUCTATION [None]
  - THROAT IRRITATION [None]
  - DIARRHOEA [None]
  - ABDOMINAL DISCOMFORT [None]
